FAERS Safety Report 11621775 (Version 1)
Quarter: 2015Q4

REPORT INFORMATION
  Report Type: Spontaneous
  Country: FR (occurrence: FR)
  Receive Date: 20151013
  Receipt Date: 20151013
  Transmission Date: 20160304
  Serious: Yes (Hospitalization)
  Sender: FDA-Public Use
  Company Number: FR-ROCHE-1645066

PATIENT
  Age: 93 Year
  Sex: Male

DRUGS (6)
  1. BISOPROLOL HEMIFUMARATE [Concomitant]
     Active Substance: BISOPROLOL FUMARATE
  2. DOLIPRANE [Concomitant]
     Active Substance: ACETAMINOPHEN
  3. FUROSEMIDE. [Concomitant]
     Active Substance: FUROSEMIDE
  4. PERMIXON [Concomitant]
     Active Substance: SAW PALMETTO
  5. OGASTORO [Concomitant]
     Active Substance: LANSOPRAZOLE
  6. XELODA [Suspect]
     Active Substance: CAPECITABINE
     Indication: ADENOCARCINOMA GASTRIC
     Route: 048
     Dates: start: 20150706

REACTIONS (4)
  - Gingivitis [Recovered/Resolved]
  - General physical health deterioration [Recovering/Resolving]
  - Stomatitis [Recovered/Resolved]
  - Feeding disorder [Recovered/Resolved]
